FAERS Safety Report 10813479 (Version 1)
Quarter: 2015Q1

REPORT INFORMATION
  Report Type: Spontaneous
  Country: US (occurrence: US)
  Receive Date: 20150218
  Receipt Date: 20150218
  Transmission Date: 20150721
  Serious: No
  Sender: FDA-Public Use
  Company Number: US-BAYER-2015-024622

PATIENT
  Sex: Female

DRUGS (5)
  1. LEVOTHYROXIN [Concomitant]
     Active Substance: LEVOTHYROXINE
     Dosage: 50 ?G, UNK
  2. BETASERON [Suspect]
     Active Substance: INTERFERON BETA-1B
     Dosage: 0.3 MG, UNK
  3. HYDROCHLOROTHIAZIDE. [Concomitant]
     Active Substance: HYDROCHLOROTHIAZIDE
     Dosage: 25 MG, UNK
  4. ADVIL [Concomitant]
     Active Substance: IBUPROFEN
     Dosage: 200 MG, UNK
  5. VITAMIN B12 [Concomitant]
     Active Substance: CYANOCOBALAMIN
     Dosage: UNK

REACTIONS (1)
  - Injection site reaction [Unknown]
